FAERS Safety Report 6337060-7 (Version None)
Quarter: 2009Q3

REPORT INFORMATION
  Report Type: 
  Country: None (occurrence: None)
  Receive Date: 20090831
  Receipt Date: 20090811
  Transmission Date: 20100115
  Serious: Yes (Hospitalization)
  Sender: FDA-Public Use
  Company Number: 2009-189966-NL

PATIENT
  Age: 29 Year
  Sex: Female
  Weight: 99.8 kg

DRUGS (3)
  1. NUVARING [Suspect]
     Indication: CONTRACEPTION
     Dates: start: 20050201, end: 20060716
  2. CLARITIN [Concomitant]
  3. ADVIL [Concomitant]

REACTIONS (17)
  - BLOOD PRESSURE INCREASED [None]
  - CONTUSION [None]
  - DEEP VEIN THROMBOSIS [None]
  - HAEMOGLOBIN DECREASED [None]
  - HEADACHE [None]
  - HEART RATE INCREASED [None]
  - ILIAC ARTERY STENOSIS [None]
  - JOINT SPRAIN [None]
  - MEAN CELL VOLUME DECREASED [None]
  - MICROCYTOSIS [None]
  - NAUSEA [None]
  - PHLEBITIS SUPERFICIAL [None]
  - PYREXIA [None]
  - RHINITIS ALLERGIC [None]
  - STRESS [None]
  - THROMBOLYSIS [None]
  - VOMITING [None]
